FAERS Safety Report 21648780 (Version 1)
Quarter: 2022Q4

REPORT INFORMATION
  Report Type: Spontaneous
  Country: US (occurrence: None)
  Receive Date: 20221123
  Receipt Date: 20221123
  Transmission Date: 20230112
  Serious: Yes (Death)
  Sender: FDA-Public Use
  Company Number: None

PATIENT
  Age: 55 Year
  Sex: Female
  Weight: 66.72 kg

DRUGS (16)
  1. CAPECITABINE [Suspect]
     Active Substance: CAPECITABINE
     Indication: Malignant nipple neoplasm female
     Dosage: 1500MG  TWICE DAILY ORAL
     Route: 048
  2. ADVAIR DISKUS [Concomitant]
     Active Substance: FLUTICASONE PROPIONATE\SALMETEROL XINAFOATE
  3. ASPIRIN [Concomitant]
     Active Substance: ASPIRIN
  4. ATORVASTATIN [Concomitant]
     Active Substance: ATORVASTATIN
  5. BENADRYL [Concomitant]
     Active Substance: DIPHENHYDRAMINE HYDROCHLORIDE
  6. FLOVENT [Concomitant]
     Active Substance: FLUTICASONE PROPIONATE
  7. GUAIFENESIN [Concomitant]
     Active Substance: GUAIFENESIN
  8. LORATADINE [Concomitant]
     Active Substance: LORATADINE
  9. METFORMIN [Concomitant]
     Active Substance: METFORMIN HYDROCHLORIDE
  10. MONTELUKAST [Concomitant]
     Active Substance: MONTELUKAST SODIUM
  11. NYSTATIN [Concomitant]
     Active Substance: NYSTATIN
  12. PEPCID [Concomitant]
     Active Substance: FAMOTIDINE
  13. POTASSIUM [Concomitant]
  14. PREDNISONE [Concomitant]
     Active Substance: PREDNISONE
  15. TYLENOL [Concomitant]
     Active Substance: ACETAMINOPHEN
  16. VENTOLIN [Concomitant]
     Active Substance: ALBUTEROL SULFATE

REACTIONS (1)
  - Death [None]

NARRATIVE: CASE EVENT DATE: 20221113
